FAERS Safety Report 5569953-2 (Version None)
Quarter: 2007Q4

REPORT INFORMATION
  Report Type: 
  Country: None (occurrence: None)
  Receive Date: 20071218
  Receipt Date: 20071206
  Transmission Date: 20080405
  Serious: Yes (Hospitalization)
  Sender: FDA-Public Use
  Company Number: 2007SP023826

PATIENT
  Sex: Female

DRUGS (5)
  1. PEG-INTRON [Suspect]
     Indication: HEPATITIS C
     Dosage: 1.5 MCG/KG; QW; SC; 0.75 MCG/KG
     Route: 058
     Dates: start: 20071017
  2. RIBAVIRIN [Suspect]
     Indication: HEPATITIS C
     Dosage: 1200 MG; QD; PO
     Route: 048
     Dates: start: 20071101
  3. BLINDED SCH 900519 (S-P) [Suspect]
     Indication: HEPATITIS C
     Dosage: 800 MG; TID; PO; 800 MG; TID; PO
     Route: 048
     Dates: start: 20070912, end: 20070918
  4. BLINDED SCH 900519 (S-P) [Suspect]
     Indication: HEPATITIS C
     Dosage: 800 MG; TID; PO; 800 MG; TID; PO
     Route: 048
     Dates: start: 20071017, end: 20071030
  5. BLINDED SCH 900519 (S-P) [Suspect]

REACTIONS (5)
  - ABSCESS [None]
  - ASTHENIA [None]
  - MALAISE [None]
  - PYREXIA [None]
  - WEIGHT DECREASED [None]
